FAERS Safety Report 5113911-9 (Version None)
Quarter: 2006Q3

REPORT INFORMATION
  Report Type: 
  Country: None (occurrence: None)
  Receive Date: 20060922
  Receipt Date: 20060922
  Transmission Date: 20061208
  Serious: Yes (Other)
  Sender: FDA-Public Use
  Company Number: None

PATIENT
  Age: 51 Year
  Sex: Male
  Weight: 106.5953 kg

DRUGS (1)
  1. NEXAVAR [Suspect]
     Indication: METASTATIC RENAL CELL CARCINOMA
     Dosage: 400 MG TWICE DAILY PO
     Route: 048
     Dates: start: 20060904, end: 20060911

REACTIONS (5)
  - PAIN [None]
  - RASH VESICULAR [None]
  - RECALL PHENOMENON [None]
  - SWELLING [None]
  - TENDERNESS [None]
